FAERS Safety Report 12518622 (Version 1)
Quarter: 2016Q2

REPORT INFORMATION
  Report Type: Spontaneous
  Country: US (occurrence: US)
  Receive Date: 20160630
  Receipt Date: 20160630
  Transmission Date: 20160815
  Serious: Yes (Other)
  Sender: FDA-Public Use
  Company Number: US-TEVA-671074USA

PATIENT
  Sex: Female

DRUGS (1)
  1. ZECUITY [Suspect]
     Active Substance: SUMATRIPTAN SUCCINATE
     Indication: MIGRAINE
     Route: 062
     Dates: start: 20160227, end: 20160227

REACTIONS (11)
  - Application site pain [Recovered/Resolved]
  - Application site pruritus [Recovered/Resolved]
  - Application site erythema [Recovered/Resolved]
  - Skin wrinkling [Recovered/Resolved]
  - Application site inflammation [Recovered/Resolved]
  - Application site irritation [Recovered/Resolved]
  - Application site exfoliation [Recovered/Resolved]
  - Application site mass [Recovered/Resolved]
  - Application site discolouration [Recovered/Resolved]
  - Chemical injury [Recovered/Resolved]
  - Product physical issue [Unknown]
